FAERS Safety Report 9127762 (Version 1)
Quarter: 2013Q1

REPORT INFORMATION
  Report Type: Spontaneous
  Country: GB (occurrence: GB)
  Receive Date: 20130122
  Receipt Date: 20130122
  Transmission Date: 20140127
  Serious: Yes (Hospitalization)
  Sender: FDA-Public Use
  Company Number: GB-US-EMD SERONO, INC.-7179506

PATIENT
  Sex: Female

DRUGS (1)
  1. REBIF [Suspect]
     Indication: RELAPSING-REMITTING MULTIPLE SCLEROSIS
     Route: 058
     Dates: start: 2002

REACTIONS (7)
  - Injection site infection [Recovering/Resolving]
  - Injection site injury [Unknown]
  - Fear of injection [Unknown]
  - Injection site cellulitis [Unknown]
  - Injection site induration [Unknown]
  - Injection site pain [Unknown]
  - Wrong technique in drug usage process [Unknown]
